FAERS Safety Report 11368915 (Version 1)
Quarter: 2015Q3

REPORT INFORMATION
  Report Type: Spontaneous
  Country: IT (occurrence: IT)
  Receive Date: 20150812
  Receipt Date: 20150812
  Transmission Date: 20151125
  Serious: Yes (Hospitalization)
  Sender: FDA-Public Use
  Company Number: IT-ASTRAZENECA-2015SE75855

PATIENT
  Age: 33621 Day
  Sex: Female

DRUGS (5)
  1. TRITTICO [Interacting]
     Active Substance: TRAZODONE HYDROCHLORIDE
     Indication: VASCULAR ENCEPHALOPATHY
     Route: 048
     Dates: start: 20140101
  2. SEROQUEL [Suspect]
     Active Substance: QUETIAPINE FUMARATE
     Indication: VASCULAR ENCEPHALOPATHY
     Route: 048
     Dates: start: 20140101
  3. SERENASE [Interacting]
     Active Substance: HALOPERIDOL
     Indication: VASCULAR ENCEPHALOPATHY
     Dosage: 10 MG/ML ORAL DROPS, SOLUTION, 15 GTT DAILY
     Route: 048
     Dates: start: 20140101
  4. EUTIMIL [Interacting]
     Active Substance: PAROXETINE HYDROCHLORIDE
     Indication: VASCULAR ENCEPHALOPATHY
     Route: 048
     Dates: start: 20150101
  5. ATARAX [Interacting]
     Active Substance: HYDROXYZINE\HYDROXYZINE HYDROCHLORIDE
     Indication: VASCULAR ENCEPHALOPATHY
     Route: 048
     Dates: start: 20140101

REACTIONS (3)
  - Psychomotor retardation [Not Recovered/Not Resolved]
  - Off label use [Unknown]
  - Drug interaction [Unknown]

NARRATIVE: CASE EVENT DATE: 20140101
